FAERS Safety Report 4759633-5 (Version None)
Quarter: 2005Q3

REPORT INFORMATION
  Report Type: 
  Country: None (occurrence: None)
  Receive Date: 20050901
  Receipt Date: 20050523
  Transmission Date: 20060218
  Serious: Yes (Death, Hospitalization)
  Sender: FDA-Public Use
  Company Number: US-MERCK-0505USA02946

PATIENT
  Age: 60 Year
  Sex: Female
  Weight: 77 kg

DRUGS (3)
  1. VIOXX [Suspect]
     Indication: SHOULDER PAIN
     Route: 048
     Dates: start: 20030101, end: 20030501
  2. SYNTHROID [Concomitant]
     Indication: PAIN
     Route: 065
  3. IBUPROFEN [Concomitant]
     Indication: THYROID DISORDER
     Route: 065

REACTIONS (1)
  - CARDIAC ARREST [None]
